FAERS Safety Report 20983776 (Version 1)
Quarter: 2022Q2

REPORT INFORMATION
  Report Type: Spontaneous
  Country: FI (occurrence: FI)
  Receive Date: 20220621
  Receipt Date: 20220621
  Transmission Date: 20220721
  Serious: Yes (Other)
  Sender: FDA-Public Use
  Company Number: FI-SUN PHARMACEUTICAL INDUSTRIES LTD-2022RR-341463

PATIENT
  Age: 6 Decade
  Sex: Female

DRUGS (2)
  1. GEMCITABINE [Suspect]
     Active Substance: GEMCITABINE
     Indication: Bladder transitional cell carcinoma
     Dosage: 1000 MILLIGRAM/SQ. METER ON DAYS 1, 8, 15 EVERY 4 WEEKS
     Route: 065
  2. CISPLATIN [Suspect]
     Active Substance: CISPLATIN
     Indication: Bladder transitional cell carcinoma
     Dosage: 70 MILLIGRAM/SQ. METER ON DAY 2 EVERY 4 WEEKS
     Route: 065

REACTIONS (1)
  - Malignant neoplasm progression [Unknown]
